FAERS Safety Report 16383973 (Version 2)
Quarter: 2019Q3

REPORT INFORMATION
  Report Type: Report from Study
  Country: US (occurrence: US)
  Receive Date: 20190603
  Receipt Date: 20190925
  Transmission Date: 20191004
  Serious: Yes (Hospitalization, Other)
  Sender: FDA-Public Use
  Company Number: US-TESAROUBC-2019-TSO00816-US

PATIENT
  Sex: Female
  Weight: 73 kg

DRUGS (3)
  1. NIRAPARIB [Suspect]
     Active Substance: NIRAPARIB
     Dosage: 100 MG, QD
     Route: 048
  2. NIRAPARIB [Suspect]
     Active Substance: NIRAPARIB
     Dosage: UNK
     Route: 048
     Dates: start: 201711, end: 2017
  3. NIRAPARIB [Suspect]
     Active Substance: NIRAPARIB
     Dosage: 100 MG, QPM WITH FOOD
     Route: 048

REACTIONS (7)
  - Cardiac stress test abnormal [Unknown]
  - Stent placement [Unknown]
  - Sepsis [Unknown]
  - Oxygen saturation decreased [Unknown]
  - Influenza like illness [Unknown]
  - Carbon dioxide increased [Unknown]
  - Staphylococcal infection [Unknown]
